FAERS Safety Report 19110904 (Version 1)
Quarter: 2021Q2

REPORT INFORMATION
  Report Type: Spontaneous
  Country: US (occurrence: US)
  Receive Date: 20210408
  Receipt Date: 20210408
  Transmission Date: 20210717
  Serious: Yes (Death, Other)
  Sender: FDA-Public Use
  Company Number: US-SA-2019SA209945

PATIENT
  Age: 75 Year
  Sex: Male

DRUGS (1)
  1. CAPRELSA [Suspect]
     Active Substance: VANDETANIB
     Indication: THYROID CANCER
     Dosage: 300 MG, QD
     Route: 048
     Dates: start: 20190627, end: 20210402

REACTIONS (7)
  - Erythema [Unknown]
  - Pruritus [Unknown]
  - Asthenia [Unknown]
  - Death [Fatal]
  - Feeling jittery [Unknown]
  - Peripheral swelling [Unknown]
  - Diarrhoea [Unknown]
